FAERS Safety Report 14182289 (Version 1)
Quarter: 2017Q4

REPORT INFORMATION
  Report Type: Spontaneous
  Country: CH (occurrence: CH)
  Receive Date: 20171113
  Receipt Date: 20171113
  Transmission Date: 20180321
  Serious: Yes (Hospitalization, Other)
  Sender: FDA-Public Use
  Company Number: CH-ROCHE-2020987

PATIENT
  Age: 16 Year
  Sex: Female

DRUGS (29)
  1. TISAGENLECLEUCEL. [Suspect]
     Active Substance: TISAGENLECLEUCEL
     Indication: DIFFUSE LARGE B-CELL LYMPHOMA
     Dosage: DOSAGE IS UNCERTAIN.
     Route: 041
     Dates: start: 20151016
  2. CYCLOPHOSPHAMIDE. [Suspect]
     Active Substance: CYCLOPHOSPHAMIDE
     Indication: PRODUCT USED FOR UNKNOWN INDICATION
     Route: 065
     Dates: start: 20151010, end: 20151011
  3. FUROSEMIDE. [Concomitant]
     Active Substance: FUROSEMIDE
  4. TRAZODONE [Concomitant]
     Active Substance: TRAZODONE HYDROCHLORIDE
  5. BUMETANIDE. [Concomitant]
     Active Substance: BUMETANIDE
  6. HYDROCHLOROTHIAZIDE. [Concomitant]
     Active Substance: HYDROCHLOROTHIAZIDE
  7. NYSTATIN. [Concomitant]
     Active Substance: NYSTATIN
  8. NOREPINEPHRINE. [Concomitant]
     Active Substance: NOREPINEPHRINE
  9. CLONIDINE. [Concomitant]
     Active Substance: CLONIDINE
  10. GENTAMICIN. [Concomitant]
     Active Substance: GENTAMICIN
  11. FLUCONAZOLE. [Concomitant]
     Active Substance: FLUCONAZOLE
  12. ALLOPURINOL. [Concomitant]
     Active Substance: ALLOPURINOL
     Route: 065
  13. ACTEMRA [Suspect]
     Active Substance: TOCILIZUMAB
     Indication: CYTOKINE RELEASE SYNDROME
     Dosage: DOSAGE IS UNCERTAIN.
     Route: 042
     Dates: start: 20151022
  14. LORAZEPAM. [Concomitant]
     Active Substance: LORAZEPAM
     Route: 065
     Dates: start: 20151022
  15. LABETALOL [Concomitant]
     Active Substance: LABETALOL\LABETALOL HYDROCHLORIDE
  16. GUAIFENESIN. [Concomitant]
     Active Substance: GUAIFENESIN
  17. FLUDARABINE [Suspect]
     Active Substance: FLUDARABINE PHOSPHATE
     Indication: PRODUCT USED FOR UNKNOWN INDICATION
     Route: 065
     Dates: start: 20151010, end: 20151013
  18. VANCOMYCIN [Concomitant]
     Active Substance: VANCOMYCIN
  19. CEFDINIR. [Concomitant]
     Active Substance: CEFDINIR
  20. LEVOGLUTAMIDE [Concomitant]
     Active Substance: GLUTAMINE
  21. SODIUM CHLORIDE. [Concomitant]
     Active Substance: SODIUM CHLORIDE
  22. NIFEDIPINE. [Concomitant]
     Active Substance: NIFEDIPINE
  23. CEFEPIME [Concomitant]
     Active Substance: CEFEPIME HYDROCHLORIDE
  24. PARACETAMOL [Concomitant]
     Active Substance: ACETAMINOPHEN
  25. CHLORHEXIDINE GLUCONATE. [Concomitant]
     Active Substance: CHLORHEXIDINE GLUCONATE
  26. METOLAZONE. [Concomitant]
     Active Substance: METOLAZONE
  27. DEXMEDETOMIDINE HYDROCHLORIDE. [Concomitant]
     Active Substance: DEXMEDETOMIDINE HYDROCHLORIDE
  28. OLANZAPINE. [Concomitant]
     Active Substance: OLANZAPINE
  29. RASBURICASE [Concomitant]
     Active Substance: RASBURICASE

REACTIONS (4)
  - Somnolence [Recovered/Resolved]
  - Dysphagia [Recovered/Resolved]
  - Encephalopathy [Recovered/Resolved]
  - Pneumonia respiratory syncytial viral [Not Recovered/Not Resolved]

NARRATIVE: CASE EVENT DATE: 20151023
